FAERS Safety Report 26111006 (Version 1)
Quarter: 2025Q4

REPORT INFORMATION
  Report Type: Spontaneous
  Country: EU (occurrence: EU)
  Receive Date: 20251202
  Receipt Date: 20251202
  Transmission Date: 20260117
  Serious: Yes (Other)
  Sender: ROCHE
  Company Number: EU-ROCHE-10000445844

PATIENT
  Age: 61 Year
  Sex: Female

DRUGS (1)
  1. ADO-TRASTUZUMAB EMTANSINE [Suspect]
     Active Substance: ADO-TRASTUZUMAB EMTANSINE
     Indication: Breast cancer
     Route: 065
     Dates: start: 202110, end: 202209

REACTIONS (3)
  - Venoocclusive liver disease [Unknown]
  - Thrombocytopenia [Unknown]
  - Nodular regenerative hyperplasia [Unknown]
